FAERS Safety Report 5163686-2 (Version None)
Quarter: 2006Q4

REPORT INFORMATION
  Report Type: 
  Country: None (occurrence: None)
  Receive Date: 20061204
  Receipt Date: 20010216
  Transmission Date: 20070319
  Serious: No
  Sender: FDA-Public Use
  Company Number: FR-GLAXOSMITHKLINE-B0099302B

PATIENT
  Sex: Female

DRUGS (5)
  1. RETROVIR [Suspect]
  2. LAMIVUDINE [Suspect]
     Route: 065
  3. LOXEN [Concomitant]
  4. SALBUTAMOL [Concomitant]
  5. CELESTENE [Concomitant]

REACTIONS (5)
  - CHORIOAMNIONITIS [None]
  - DRUG EXPOSURE DURING PREGNANCY [None]
  - PREMATURE LABOUR [None]
  - PREMATURE RUPTURE OF MEMBRANES [None]
  - PYREXIA [None]
